FAERS Safety Report 8037336-1 (Version None)
Quarter: 2012Q1

REPORT INFORMATION
  Report Type: 
  Country: None (occurrence: None)
  Receive Date: 20120111
  Receipt Date: 20120106
  Transmission Date: 20120608
  Serious: Yes (Other)
  Sender: FDA-Public Use
  Company Number: US-BAYER-2012-002918

PATIENT
  Age: 64 Year
  Sex: Female
  Weight: 61 kg

DRUGS (10)
  1. NASONEX [Concomitant]
  2. CALCIUM [Concomitant]
  3. VITAMIN B-12 [Concomitant]
  4. PRAVASTATIN [Concomitant]
  5. FISH OIL [Concomitant]
  6. ALEVE (CAPLET) [Suspect]
     Dosage: 2 DF, ONCE
     Route: 048
     Dates: start: 20111217, end: 20111217
  7. NEXIUM [Concomitant]
  8. DOXYCYCLINE [Concomitant]
  9. SINMGULAR [Concomitant]
  10. ASPIRIN [Concomitant]

REACTIONS (8)
  - HYPERSENSITIVITY [None]
  - BURNING SENSATION [None]
  - CHEST DISCOMFORT [None]
  - PRURITUS [None]
  - GENERALISED ERYTHEMA [None]
  - LOSS OF CONSCIOUSNESS [None]
  - PRURITUS GENITAL [None]
  - DYSPNOEA [None]
